FAERS Safety Report 23338819 (Version 1)
Quarter: 2023Q4

REPORT INFORMATION
  Report Type: Report from Study
  Country: US (occurrence: US)
  Receive Date: 20231226
  Receipt Date: 20231226
  Transmission Date: 20240109
  Serious: No
  Sender: FDA-Public Use
  Company Number: US-BIOVITRUM-2023-US-020910

PATIENT
  Age: 0 Year
  Sex: Male

DRUGS (2)
  1. SYNAGIS [Suspect]
     Active Substance: PALIVIZUMAB
     Indication: Premature baby
     Dosage: INJECT 15 MG/KG INTRAMUSCULARLY ONCE MONTHLY (DOSE BASED ON PATIENT^S CURRENT WEIGHT)
     Route: 030
  2. POLY-VI-SOL/IRON [Concomitant]
     Indication: Product used for unknown indication

REACTIONS (1)
  - Rash [Unknown]
